FAERS Safety Report 20619800 (Version 2)
Quarter: 2022Q3

REPORT INFORMATION
  Report Type: Spontaneous
  Country: US (occurrence: US)
  Receive Date: 20220322
  Receipt Date: 20220912
  Transmission Date: 20221026
  Serious: Yes (Other)
  Sender: FDA-Public Use
  Company Number: ALC2022US001345

PATIENT
  Age: 63 Year
  Sex: Female

DRUGS (3)
  1. SYSTANE LUBRICANT [Suspect]
     Active Substance: POLYETHYLENE GLYCOL 400\PROPYLENE GLYCOL
     Indication: Product used for unknown indication
     Dosage: UNKNOWN
     Route: 047
  2. EYSUVIS [Suspect]
     Active Substance: LOTEPREDNOL ETABONATE
     Indication: Dry eye
     Dosage: BID (2X/DAY),
     Route: 047
     Dates: start: 20210305, end: 20220225
  3. RESTASIS [Suspect]
     Active Substance: CYCLOSPORINE
     Indication: Product used for unknown indication
     Dosage: UNK, BID
     Route: 065
     Dates: start: 20210305

REACTIONS (11)
  - Ulcerative keratitis [Not Recovered/Not Resolved]
  - Corneal disorder [Not Recovered/Not Resolved]
  - Corneal opacity [Not Recovered/Not Resolved]
  - Corneal neovascularisation [Not Recovered/Not Resolved]
  - Acarodermatitis [Unknown]
  - Visual acuity reduced [Not Recovered/Not Resolved]
  - Infestation [Unknown]
  - Pruritus [Unknown]
  - Inappropriate schedule of product administration [Recovered/Resolved]
  - Arthropod bite [Unknown]
  - Retinal disorder [Unknown]

NARRATIVE: CASE EVENT DATE: 20220105
